FAERS Safety Report 5909490-6 (Version None)
Quarter: 2008Q4

REPORT INFORMATION
  Report Type: 
  Country: None (occurrence: None)
  Receive Date: 20081002
  Receipt Date: 20080922
  Transmission Date: 20090506
  Serious: Yes (Other)
  Sender: FDA-Public Use
  Company Number: 100#08#2008-04744

PATIENT
  Sex: Male

DRUGS (4)
  1. DOXORUBICIN HCL [Suspect]
     Indication: BONE SARCOMA
     Dosage: SEE IMAGE
     Route: 013
  2. CISPLATIN [Suspect]
     Indication: BONE SARCOMA
     Dosage: SEE IMAGE
     Route: 013
  3. METHOTREXATE [Suspect]
     Indication: BONE SARCOMA
     Dosage: 10 G/M2  2 CYCLES
  4. IFOSFAMIDE [Suspect]
     Indication: BONE SARCOMA
     Dosage: 10 G/M2  2 CYCLES

REACTIONS (1)
  - SYNOVIAL SARCOMA [None]
